FAERS Safety Report 4781790-5 (Version None)
Quarter: 2005Q3

REPORT INFORMATION
  Report Type: 
  Country: None (occurrence: None)
  Receive Date: 20050927
  Receipt Date: 20050912
  Transmission Date: 20060218
  Serious: Yes (Other)
  Sender: FDA-Public Use
  Company Number: 0205043

PATIENT
  Age: 51 Year
  Sex: Female

DRUGS (1)
  1. DEPODUR [Suspect]
     Indication: POSTOPERATIVE ANALGESIA
     Dosage: 15 MG (ONCE), EPIDURAL
     Route: 008
     Dates: start: 20050909, end: 20050909

REACTIONS (7)
  - ATRIAL FIBRILLATION [None]
  - CARDIAC ARREST [None]
  - DISEASE RECURRENCE [None]
  - DIZZINESS [None]
  - OXYGEN SATURATION DECREASED [None]
  - RESPIRATORY DEPRESSION [None]
  - SEDATION [None]
